FAERS Safety Report 16970333 (Version 2)
Quarter: 2019Q4

REPORT INFORMATION
  Report Type: Spontaneous
  Country: US (occurrence: US)
  Receive Date: 20191029
  Receipt Date: 20191212
  Transmission Date: 20200122
  Serious: No
  Sender: FDA-Public Use
  Company Number: US-PFIZER INC-2018278013

PATIENT
  Age: 14 Year
  Sex: Female
  Weight: 35.7 kg

DRUGS (3)
  1. GENOTROPIN [Suspect]
     Active Substance: SOMATROPIN
     Indication: GROWTH HORMONE DEFICIENCY
     Dosage: 1.8 MG, DAILY 6 DAYS A WEEK
     Dates: start: 20180110
  2. GENOTROPIN [Suspect]
     Active Substance: SOMATROPIN
     Dosage: 2.4 MG, DAILY 6 DAYS A WEEK
     Dates: start: 20191015
  3. GENOTROPIN [Suspect]
     Active Substance: SOMATROPIN
     Dosage: 2.2 MG, DAILY 6 DAYS A WEEK
     Dates: end: 20191015

REACTIONS (3)
  - Product dose omission [Unknown]
  - Device leakage [Unknown]
  - Influenza [Unknown]

NARRATIVE: CASE EVENT DATE: 2018
